FAERS Safety Report 8290305-9 (Version None)
Quarter: 2012Q2

REPORT INFORMATION
  Report Type: 
  Country: None (occurrence: None)
  Receive Date: 20120417
  Receipt Date: 20120403
  Transmission Date: 20120825
  Serious: Yes (Hospitalization)
  Sender: FDA-Public Use
  Company Number: PHHO2009DE15356

PATIENT
  Sex: Female
  Weight: 92.9 kg

DRUGS (2)
  1. TACROLIMUS [Suspect]
     Indication: LIVER TRANSPLANT
     Dosage: UNK
     Route: 048
     Dates: start: 20091031
  2. EVEROLIMUS [Suspect]
     Indication: LIVER TRANSPLANT
     Dosage: UNK
     Route: 048
     Dates: start: 20091031, end: 20100429

REACTIONS (9)
  - NAUSEA [None]
  - BLOOD URIC ACID INCREASED [None]
  - VOMITING [None]
  - C-REACTIVE PROTEIN INCREASED [None]
  - ABDOMINAL PAIN UPPER [None]
  - BLOOD UREA INCREASED [None]
  - IMPAIRED GASTRIC EMPTYING [None]
  - URINARY TRACT INFECTION [None]
  - BLOOD CREATININE INCREASED [None]
